FAERS Safety Report 7655470-2 (Version None)
Quarter: 2011Q3

REPORT INFORMATION
  Report Type: 
  Country: None (occurrence: None)
  Receive Date: 20110804
  Receipt Date: 20110727
  Transmission Date: 20111222
  Serious: Yes (Hospitalization, Other)
  Sender: FDA-Public Use
  Company Number: JP-ASTELLAS-2011JP005234

PATIENT
  Age: 7 Year
  Sex: Male

DRUGS (9)
  1. PROGRAF [Suspect]
     Route: 065
  2. PREDNISOLONE [Concomitant]
     Dosage: 2 MG/KG, UNKNOWN/D
     Route: 065
  3. HEPARIN [Concomitant]
     Indication: THROMBOTIC MICROANGIOPATHY
     Route: 065
  4. PREDNISOLONE [Concomitant]
     Route: 065
  5. PROGRAF [Suspect]
     Indication: IMMUNOSUPPRESSANT DRUG THERAPY
     Route: 065
  6. MYCOPHENOLATE MOFETIL [Concomitant]
     Dosage: 50 MG/KG, UNKNOWN/D
     Route: 065
  7. PREDNISOLONE [Concomitant]
     Indication: IMMUNOSUPPRESSANT DRUG THERAPY
     Route: 065
  8. METHYLPREDNISOLONE [Concomitant]
     Indication: ACUTE GRAFT VERSUS HOST DISEASE
     Route: 065
  9. MYCOPHENOLATE MOFETIL [Concomitant]
     Dosage: 37.5 MG/KG, UNKNOWN/D
     Route: 065

REACTIONS (6)
  - DRUG INEFFECTIVE [None]
  - THROMBOTIC MICROANGIOPATHY [None]
  - PANCREATITIS ACUTE [None]
  - GRAFT VERSUS HOST DISEASE [None]
  - CANDIDA SEPSIS [None]
  - ACUTE GRAFT VERSUS HOST DISEASE [None]
